FAERS Safety Report 5933213-8 (Version None)
Quarter: 2008Q4

REPORT INFORMATION
  Report Type: 
  Country: None (occurrence: None)
  Receive Date: 20081028
  Receipt Date: 20081006
  Transmission Date: 20090506
  Serious: Yes (Other)
  Sender: FDA-Public Use
  Company Number: US-BAYER-200813978BCC

PATIENT
  Age: 65 Year
  Sex: Male
  Weight: 93 kg

DRUGS (10)
  1. PHILLIPS' MILK OF MAGNESIA LIQUID CHERRY [Suspect]
     Indication: CONSTIPATION
     Dosage: UNIT DOSE: 15 ML
     Route: 048
  2. PHILLIPS' MILK OF MAGNESIA LIQUID CHERRY [Suspect]
     Route: 048
  3. PHILLIPS' COLON HEALTH CAPSULES [Suspect]
     Indication: CONSTIPATION
     Route: 048
  4. LISINOPRIL [Concomitant]
  5. LOPRESSOR [Concomitant]
  6. ZOCOR [Concomitant]
  7. TYLENOL [Concomitant]
  8. HYDROCODONE BITARTRATE [Concomitant]
  9. ASPIRIN [Concomitant]
  10. VITAMIN TAB [Concomitant]

REACTIONS (5)
  - ABDOMINAL DISCOMFORT [None]
  - CONSTIPATION [None]
  - FAECES HARD [None]
  - NAUSEA [None]
  - RECTAL HAEMORRHAGE [None]
